FAERS Safety Report 26170574 (Version 1)
Quarter: 2025Q4

REPORT INFORMATION
  Report Type: Spontaneous
  Country: US (occurrence: US)
  Receive Date: 20251217
  Receipt Date: 20251217
  Transmission Date: 20260117
  Serious: No
  Sender: ALVOGEN
  Company Number: US-ALVOGEN-2025097675

PATIENT
  Age: 64 Year
  Sex: Female

DRUGS (2)
  1. FENTANYL [Suspect]
     Active Substance: FENTANYL
     Indication: Pain
     Dosage: FOR 6 MONTHS OR MORE
     Route: 062
     Dates: start: 2024
  2. FENTANYL [Suspect]
     Active Substance: FENTANYL
     Indication: Pain
     Dosage: EXPIRATION: UU-JUL-2027; 3 BOXES?100 MCG/HR
     Route: 062

REACTIONS (3)
  - Device adhesion issue [Unknown]
  - Device malfunction [Unknown]
  - Wrong technique in product usage process [Unknown]

NARRATIVE: CASE EVENT DATE: 20240101
